FAERS Safety Report 21007646 (Version 2)
Quarter: 2022Q3

REPORT INFORMATION
  Report Type: Report from Study
  Country: AR (occurrence: AR)
  Receive Date: 20220627
  Receipt Date: 20220726
  Transmission Date: 20221027
  Serious: Yes (Other)
  Sender: FDA-Public Use
  Company Number: AR-ABBVIE-22K-007-4445958-00

PATIENT
  Sex: Female

DRUGS (1)
  1. HUMIRA [Suspect]
     Active Substance: ADALIMUMAB
     Indication: Rheumatoid arthritis
     Route: 058
     Dates: start: 20140807

REACTIONS (7)
  - Cataract [Recovered/Resolved]
  - Myopia [Recovered/Resolved]
  - Presbyopia [Recovered/Resolved]
  - Cataract [Recovered/Resolved]
  - Keratitis [Recovering/Resolving]
  - Myopia [Recovered/Resolved]
  - Presbyopia [Recovered/Resolved]

NARRATIVE: CASE EVENT DATE: 20210101
